FAERS Safety Report 25633017 (Version 1)
Quarter: 2025Q3

REPORT INFORMATION
  Report Type: Spontaneous
  Country: US (occurrence: US)
  Receive Date: 20250801
  Receipt Date: 20250801
  Transmission Date: 20251021
  Serious: No
  Sender: MYLAN
  Company Number: US-MYLANLABS-2025M1062966

PATIENT

DRUGS (4)
  1. TYRVAYA [Suspect]
     Active Substance: VARENICLINE TARTRATE
     Indication: Product used for unknown indication
  2. TYRVAYA [Suspect]
     Active Substance: VARENICLINE TARTRATE
     Route: 045
  3. TYRVAYA [Suspect]
     Active Substance: VARENICLINE TARTRATE
     Route: 045
  4. TYRVAYA [Suspect]
     Active Substance: VARENICLINE TARTRATE

REACTIONS (3)
  - Nasal dryness [Recovered/Resolved]
  - Epistaxis [Recovered/Resolved]
  - Nasal discomfort [Recovered/Resolved]
